FAERS Safety Report 4875214-7 (Version None)
Quarter: 2006Q1

REPORT INFORMATION
  Report Type: 
  Country: None (occurrence: None)
  Receive Date: 20060109
  Receipt Date: 20050829
  Transmission Date: 20060701
  Serious: Yes (Hospitalization, Disabling, Other)
  Sender: FDA-Public Use
  Company Number: US-MERCK-0508USA04680

PATIENT
  Age: 57 Year
  Sex: Male
  Weight: 82 kg

DRUGS (2)
  1. VIOXX [Suspect]
     Indication: BACK PAIN
     Route: 048
     Dates: start: 20000101, end: 20030101
  2. VIOXX [Suspect]
     Indication: ARTHRITIS
     Route: 048
     Dates: start: 20000101, end: 20030101

REACTIONS (14)
  - BACK DISORDER [None]
  - BACK INJURY [None]
  - CHEST PAIN [None]
  - DYSPNOEA [None]
  - GASTROOESOPHAGEAL REFLUX DISEASE [None]
  - INGUINAL MASS [None]
  - MUSCULOSKELETAL CHEST PAIN [None]
  - MYOCARDIAL INFARCTION [None]
  - NECK INJURY [None]
  - NECK PAIN [None]
  - PULMONARY EMBOLISM [None]
  - SPINAL FUSION SURGERY [None]
  - THROMBOSIS [None]
  - UMBILICAL HERNIA REPAIR [None]
